FAERS Safety Report 8726227 (Version 4)
Quarter: 2019Q3

REPORT INFORMATION
  Report Type: Spontaneous
  Country: FR (occurrence: FR)
  Receive Date: 20120816
  Receipt Date: 20190904
  Transmission Date: 20191005
  Serious: Yes (Hospitalization, Other)
  Sender: FDA-Public Use
  Company Number: FR-PFIZER INC-2012197403

PATIENT
  Age: 70 Year
  Sex: Male
  Weight: 80 kg

DRUGS (14)
  1. TRIATEC [RAMIPRIL] [Suspect]
     Active Substance: RAMIPRIL
     Dosage: 10 MG, 1X/DAY (QD)
     Route: 048
     Dates: start: 2010, end: 20110107
  2. ZOCOR [Concomitant]
     Active Substance: SIMVASTATIN
     Dosage: 20 MG, 1X/DAY
     Route: 048
     Dates: start: 2010, end: 20110107
  3. ALLOPURINOL. [Concomitant]
     Active Substance: ALLOPURINOL
     Dosage: 1 DF, 1X/DAY
     Dates: start: 2010, end: 20110107
  4. OXEOL [Concomitant]
     Active Substance: BAMBUTEROL HYDROCHLORIDE
     Dosage: UNK
  5. SPIRIVA [Concomitant]
     Active Substance: TIOTROPIUM BROMIDE MONOHYDRATE
     Dosage: UNK
  6. NOVOMIX [Concomitant]
     Active Substance: INSULIN ASPART
     Dosage: UNK
  7. AERIUS (DESLORATADINE) [Concomitant]
     Active Substance: DESLORATADINE
     Dosage: UNK
  8. NOVORAPID [Concomitant]
     Active Substance: INSULIN ASPART
     Dosage: UNK
  9. OMEXEL [Concomitant]
     Active Substance: TAMSULOSIN HYDROCHLORIDE
     Dosage: UNK
  10. HYDROCORTISONE. [Concomitant]
     Active Substance: HYDROCORTISONE
     Dosage: UNK
  11. EFFERALGAN [Concomitant]
     Active Substance: ACETAMINOPHEN
     Dosage: UNK
  12. AERIUS [EBASTINE] [Concomitant]
     Active Substance: EBASTINE
     Dosage: UNK
  13. APROVEL [Suspect]
     Active Substance: IRBESARTAN
     Dosage: 300 MG, 1X/DAY (QD)
     Route: 048
     Dates: start: 2010, end: 20110107
  14. SYMBICORT [Concomitant]
     Active Substance: BUDESONIDE\FORMOTEROL FUMARATE DIHYDRATE
     Dosage: UNK

REACTIONS (4)
  - Gastroenteritis norovirus [Unknown]
  - Acute kidney injury [Recovered/Resolved]
  - Hypotension [Unknown]
  - Tachycardia [Unknown]

NARRATIVE: CASE EVENT DATE: 20110104
